FAERS Safety Report 5492854-5 (Version None)
Quarter: 2007Q4

REPORT INFORMATION
  Report Type: 
  Country: None (occurrence: None)
  Receive Date: 20071023
  Receipt Date: 20070215
  Transmission Date: 20080405
  Serious: No
  Sender: FDA-Public Use
  Company Number: US-BRISTOL-MYERS SQUIBB COMPANY-13680673

PATIENT
  Age: 81 Year
  Sex: Female

DRUGS (4)
  1. BUSPAR [Suspect]
  2. BENAZEPRIL HCL [Concomitant]
  3. HYDROCHLOROTHIAZIDE [Concomitant]
  4. NORVASC [Concomitant]

REACTIONS (3)
  - HYPERTENSION [None]
  - RED BLOOD CELL COUNT DECREASED [None]
  - RENAL FAILURE [None]
